FAERS Safety Report 6345193-4 (Version None)
Quarter: 2009Q3

REPORT INFORMATION
  Report Type: 
  Country: None (occurrence: None)
  Receive Date: 20090909
  Receipt Date: 20090630
  Transmission Date: 20100115
  Serious: Yes (Other)
  Sender: FDA-Public Use
  Company Number: US-JNJFOC-20090604705

PATIENT
  Sex: Female

DRUGS (2)
  1. LEVAQUIN [Suspect]
     Indication: CELLULITIS
     Dosage: FOR FIVE DAYS
     Route: 048
  2. ANTIINFECTIVES [Concomitant]
     Indication: BACTERIAL INFECTION
     Route: 065

REACTIONS (17)
  - ABNORMAL DREAMS [None]
  - AMNESIA [None]
  - BALANCE DISORDER [None]
  - BURNING SENSATION [None]
  - DRY MOUTH [None]
  - FALL [None]
  - FLATULENCE [None]
  - HEADACHE [None]
  - HYPERSENSITIVITY [None]
  - HYPOACUSIS [None]
  - INITIAL INSOMNIA [None]
  - MALAISE [None]
  - PRURITUS GENERALISED [None]
  - RASH ERYTHEMATOUS [None]
  - SECRETION DISCHARGE [None]
  - TENDONITIS [None]
  - VISUAL ACUITY REDUCED [None]
